FAERS Safety Report 13789831 (Version 2)
Quarter: 2019Q3

REPORT INFORMATION
  Report Type: Spontaneous
  Country: US (occurrence: US)
  Receive Date: 20170725
  Receipt Date: 20190802
  Transmission Date: 20191004
  Serious: No
  Sender: FDA-Public Use
  Company Number: US-PFIZER INC-2017318748

PATIENT
  Age: 43 Year
  Sex: Female
  Weight: 61 kg

DRUGS (5)
  1. LYRICA [Suspect]
     Active Substance: PREGABALIN
     Dosage: 400 MG, DAILY (100MG IN THE MORNING AND 300MG AT NIGHT)
  2. LYRICA [Suspect]
     Active Substance: PREGABALIN
     Dosage: UNK
     Dates: end: 2009
  3. LYRICA [Suspect]
     Active Substance: PREGABALIN
     Indication: NEUROPATHY PERIPHERAL
     Dosage: 300 MG, 1X/DAY  (ONCE AT NIGHT)
     Route: 048
     Dates: start: 2007
  4. LYRICA [Suspect]
     Active Substance: PREGABALIN
     Dosage: UNK
     Dates: end: 2013
  5. LYRICA [Suspect]
     Active Substance: PREGABALIN
     Dosage: 200 MG, UNK

REACTIONS (7)
  - Withdrawal syndrome [Unknown]
  - Pruritus [Unknown]
  - Dysphonia [Unknown]
  - Malaise [Unknown]
  - Pain [Not Recovered/Not Resolved]
  - Oropharyngeal pain [Unknown]
  - Weight increased [Not Recovered/Not Resolved]

NARRATIVE: CASE EVENT DATE: 2007
